FAERS Safety Report 14536923 (Version 3)
Quarter: 2018Q2

REPORT INFORMATION
  Report Type: Spontaneous
  Country: CA (occurrence: CA)
  Receive Date: 20180215
  Receipt Date: 20180606
  Transmission Date: 20180711
  Serious: Yes (Life-Threatening, Hospitalization, Disabling, Other)
  Sender: FDA-Public Use
  Company Number: CA-OTSUKA-2017_016603

PATIENT
  Age: 12 Day
  Sex: Male
  Weight: 2.71 kg

DRUGS (17)
  1. ABILIFY [Suspect]
     Active Substance: ARIPIPRAZOLE
     Dosage: 15 MG, QD
     Route: 063
  2. SERTRALINE HYDROCHLORIDE. [Suspect]
     Active Substance: SERTRALINE HYDROCHLORIDE
     Indication: BIPOLAR DISORDER
     Dosage: 100 MG, QD
     Route: 064
  3. DOCUSATE [Suspect]
     Active Substance: DOCUSATE
     Dosage: UNK
     Route: 064
  4. FOLIC ACID. [Concomitant]
     Active Substance: FOLIC ACID
     Indication: PRODUCT USED FOR UNKNOWN INDICATION
     Dosage: UNK
     Route: 064
  5. DOCUSATE [Suspect]
     Active Substance: DOCUSATE
     Indication: PRODUCT USED FOR UNKNOWN INDICATION
     Dosage: UNK
     Route: 063
  6. SERTRALINE HYDROCHLORIDE. [Suspect]
     Active Substance: SERTRALINE HYDROCHLORIDE
     Dosage: 100 MG, QD
     Route: 063
  7. ACETAMINOPHEN AND CODEINE [Suspect]
     Active Substance: ACETAMINOPHEN\CODEINE PHOSPHATE
     Indication: PRODUCT USED FOR UNKNOWN INDICATION
     Dosage: UNK
     Route: 063
  8. NAPROXEN. [Concomitant]
     Active Substance: NAPROXEN
     Dosage: UNK
     Route: 064
  9. APO-LAMOTRIGINE [Suspect]
     Active Substance: LAMOTRIGINE
     Indication: BIPOLAR DISORDER
     Dosage: 250 MILLIGRAM,1 EVERY 1 (DAY(S))
     Route: 064
  10. NAPROXEN. [Concomitant]
     Active Substance: NAPROXEN
     Indication: PRODUCT USED FOR UNKNOWN INDICATION
     Dosage: UNK
     Route: 063
  11. FOLIC ACID. [Concomitant]
     Active Substance: FOLIC ACID
     Dosage: UNK
     Route: 063
  12. ABILIFY [Suspect]
     Active Substance: ARIPIPRAZOLE
     Indication: BIPOLAR DISORDER
     Dosage: 15 MG, QD
     Route: 064
  13. APO-LAMOTRIGINE [Suspect]
     Active Substance: LAMOTRIGINE
     Dosage: 250 MG, QD
     Route: 063
  14. ACETAMINOPHEN AND CODEINE [Suspect]
     Active Substance: ACETAMINOPHEN\CODEINE PHOSPHATE
     Dosage: UNK
     Route: 064
  15. D-ALPHA TOCOPHERYL ACETATE [Suspect]
     Active Substance: .ALPHA.-TOCOPHEROL ACETATE, D-
     Indication: PRODUCT USED FOR UNKNOWN INDICATION
     Dosage: UNK
     Route: 065
  16. LEVOTHYROXINE. [Concomitant]
     Active Substance: LEVOTHYROXINE
     Indication: BIPOLAR DISORDER
     Dosage: 50 ?G, QD
     Route: 064
  17. LEVOTHYROXINE. [Concomitant]
     Active Substance: LEVOTHYROXINE
     Dosage: UNK
     Route: 063

REACTIONS (24)
  - Hypernatraemia [Recovered/Resolved]
  - Skin turgor decreased [Recovered/Resolved]
  - Dehydration [Recovered/Resolved]
  - Peripheral artery thrombosis [Recovered/Resolved]
  - Necrosis [Recovered/Resolved]
  - Alanine aminotransferase increased [Recovered/Resolved]
  - Blood glucose increased [Recovered/Resolved]
  - Pallor [Recovered/Resolved]
  - Gross motor delay [Unknown]
  - Rhabdomyolysis [Recovered/Resolved]
  - Disseminated intravascular coagulation [Recovered/Resolved]
  - Hypokinesia [Recovered/Resolved]
  - Moaning [Recovered/Resolved]
  - Partial seizures with secondary generalisation [Recovered/Resolved]
  - Acidosis [Recovered/Resolved]
  - Foetal exposure during pregnancy [Unknown]
  - Gangrene neonatal [Recovered/Resolved with Sequelae]
  - Skin discolouration [Recovered/Resolved]
  - Weight decrease neonatal [Unknown]
  - Mucous membrane disorder [Recovered/Resolved]
  - Acute kidney injury [Recovered/Resolved]
  - Hypovolaemic shock [Recovered/Resolved]
  - Exposure via breast milk [Unknown]
  - Lethargy [Unknown]
